FAERS Safety Report 23963685 (Version 2)
Quarter: 2024Q2

REPORT INFORMATION
  Report Type: Spontaneous
  Country: CN (occurrence: CN)
  Receive Date: 20240611
  Receipt Date: 20240618
  Transmission Date: 20240715
  Serious: Yes (Death, Life-Threatening, Hospitalization)
  Sender: FDA-Public Use
  Company Number: CN-SIMCERE PHARMACEUTICAL CO., LTD.-2024XSYY2367

PATIENT

DRUGS (18)
  1. TRILACICLIB [Suspect]
     Active Substance: TRILACICLIB
     Indication: Adenosquamous cell lung cancer stage IV
     Dosage: UNK, INJECTION
     Route: 065
     Dates: start: 20230804, end: 20230804
  2. TRILACICLIB [Suspect]
     Active Substance: TRILACICLIB
     Indication: Metastases to bone
     Dosage: 300 ML, SINGLE
     Route: 042
     Dates: start: 20240528, end: 20240528
  3. PACLITAXEL [Suspect]
     Active Substance: PACLITAXEL
     Indication: Adenosquamous cell lung cancer stage IV
     Dosage: 180 ML
     Route: 042
     Dates: start: 20240528, end: 20240528
  4. PACLITAXEL [Suspect]
     Active Substance: PACLITAXEL
     Indication: Metastases to bone
  5. KETOROLAC TROMETHAMINE [Suspect]
     Active Substance: KETOROLAC TROMETHAMINE
     Indication: Product used for unknown indication
     Dosage: 30 MG, BID
     Route: 065
     Dates: start: 20240528, end: 20240528
  6. VITAMINS [Concomitant]
     Active Substance: VITAMINS
     Indication: Product used for unknown indication
     Dosage: 10 ML, QD
     Route: 042
     Dates: start: 20240527, end: 20240529
  7. COMPOSITE POTASSIUM HYDROGEN PHOSPHATE [Concomitant]
     Indication: Product used for unknown indication
     Dosage: 2 ML, QD
     Route: 042
     Dates: start: 20240527, end: 20240529
  8. SHU XUE TONG [Concomitant]
     Indication: Product used for unknown indication
     Dosage: 6 ML, QD
     Route: 042
     Dates: start: 20240528, end: 20240529
  9. APREPITANT [Concomitant]
     Active Substance: APREPITANT
     Indication: Product used for unknown indication
     Dosage: 80 MG, QD
     Route: 048
     Dates: start: 20240528, end: 20240529
  10. ONDANSETRON HYDROCHLORIDE [Concomitant]
     Active Substance: ONDANSETRON HYDROCHLORIDE
     Indication: Product used for unknown indication
     Dosage: 8 MG, TID
     Route: 048
     Dates: start: 20240528, end: 20240529
  11. BROMISOVAL AND PROCAINE [Concomitant]
     Indication: Product used for unknown indication
     Dosage: 2 ML, BID
     Dates: start: 20240528, end: 20240529
  12. DEXAMETHASONE SODIUM PHOSPHATE [Concomitant]
     Active Substance: DEXAMETHASONE PHOSPHATE\DEXAMETHASONE SODIUM PHOSPHATE
     Indication: Product used for unknown indication
     Dosage: 5 MG, QD
     Dates: start: 20240528, end: 20240529
  13. MORPHINE SULFATE [Concomitant]
     Active Substance: MORPHINE SULFATE
     Indication: Product used for unknown indication
     Dosage: 40 MG, Q12H
     Route: 048
     Dates: start: 20240528, end: 20240529
  14. TAMSULOSIN HYDROCHLORIDE [Concomitant]
     Active Substance: TAMSULOSIN HYDROCHLORIDE
     Indication: Product used for unknown indication
     Dosage: 0.2 MG, QD
     Route: 048
     Dates: start: 20240528, end: 20240528
  15. FU FANG AN LIN BA BI TUO [Concomitant]
     Indication: Product used for unknown indication
     Dosage: 2 ML
     Dates: start: 20240527, end: 20240527
  16. PAMIDRONATE DISODIUM AND GLUCOSE [Concomitant]
     Indication: Product used for unknown indication
     Dosage: 60 MG
     Route: 042
     Dates: start: 20240527, end: 20240527
  17. DISODIUM CANTHARIDINATE AND VITAMIN B6 [Concomitant]
     Indication: Product used for unknown indication
     Dosage: 50 ML, QD
     Route: 042
     Dates: start: 20240527, end: 20240529
  18. COMPOUND AMINO ACID INJECTION (3AA) [Concomitant]
     Indication: Product used for unknown indication
     Dosage: 10.65 G, QD
     Route: 042
     Dates: start: 20240527, end: 20240529

REACTIONS (1)
  - Cerebral infarction [Fatal]

NARRATIVE: CASE EVENT DATE: 20240528
